FAERS Safety Report 6419491-X (Version None)
Quarter: 2009Q4

REPORT INFORMATION
  Report Type: 
  Country: None (occurrence: None)
  Receive Date: 20091027
  Receipt Date: 20091017
  Transmission Date: 20100525
  Serious: Yes (Hospitalization)
  Sender: FDA-Public Use
  Company Number: 2009-04385

PATIENT
  Sex: Male

DRUGS (1)
  1. VELCADE [Suspect]
     Indication: MULTIPLE MYELOMA
     Dosage: 1.3 MG/M2, UNK, INTRAVENOUS
     Route: 042

REACTIONS (5)
  - COLITIS [None]
  - DECREASED APPETITE [None]
  - ILEUS [None]
  - LARGE INTESTINAL ULCER [None]
  - PANNICULITIS [None]
